FAERS Safety Report 4938577-X (Version None)
Quarter: 2006Q1

REPORT INFORMATION
  Report Type: 
  Country: None (occurrence: None)
  Receive Date: 20060306
  Receipt Date: 20060227
  Transmission Date: 20060701
  Serious: Yes (Hospitalization)
  Sender: FDA-Public Use
  Company Number: A044-002-005975

PATIENT
  Age: 92 Year
  Sex: Male

DRUGS (4)
  1. ARICEPT [Suspect]
     Indication: SCHIZOPHRENIA
     Dosage: 10 MG, 1 IN 1 D, ORAL
     Route: 048
     Dates: start: 20050601
  2. ABILIFY [Suspect]
     Indication: SCHIZOPHRENIA
     Dosage: 5 MG, ORAL
     Route: 048
     Dates: start: 20050601
  3. ASPIRIN [Concomitant]
  4. LEVOTHYROXINE SODIUM [Concomitant]

REACTIONS (3)
  - DERMATITIS EXFOLIATIVE [None]
  - HYPOTHERMIA [None]
  - THERAPY NON-RESPONDER [None]
